FAERS Safety Report 9248027 (Version 1)
Quarter: 2013Q2

REPORT INFORMATION
  Report Type: Spontaneous
  Country: US (occurrence: None)
  Receive Date: 20130419
  Receipt Date: 20130419
  Transmission Date: 20140414
  Serious: No
  Sender: FDA-Public Use
  Company Number: None

PATIENT
  Age: 74 Year
  Sex: Male

DRUGS (6)
  1. HEPARIN SODIUM [Suspect]
     Indication: THROMBOSIS PROPHYLAXIS
     Dosage: 5000 UNITS Q8HRS SQ
     Route: 058
     Dates: start: 20120924, end: 20121018
  2. PROTONIX [Concomitant]
  3. TRANDATE [Concomitant]
  4. ZYVOX IV [Concomitant]
  5. HEPARIN [Concomitant]
  6. FERROUS SULFATE [Concomitant]

REACTIONS (1)
  - Heparin-induced thrombocytopenia [None]
